FAERS Safety Report 12082336 (Version 2)
Quarter: 2016Q2

REPORT INFORMATION
  Report Type: Spontaneous
  Country: US (occurrence: US)
  Receive Date: 20160217
  Receipt Date: 20160429
  Transmission Date: 20160815
  Serious: Yes (Other)
  Sender: FDA-Public Use
  Company Number: US-BEH-2016058695

PATIENT
  Sex: Female
  Weight: 51 kg

DRUGS (31)
  1. HIZENTRA [Suspect]
     Active Substance: HUMAN IMMUNOGLOBULIN G
  2. HIZENTRA [Suspect]
     Active Substance: HUMAN IMMUNOGLOBULIN G
  3. EPIPEN [Concomitant]
     Active Substance: EPINEPHRINE
  4. IMITREX [Concomitant]
     Active Substance: SUMATRIPTAN SUCCINATE
  5. ONE A DAY [Concomitant]
  6. PILOCARPINE. [Concomitant]
     Active Substance: PILOCARPINE
  7. CHOLESTYRAMINE. [Concomitant]
     Active Substance: CHOLESTYRAMINE
  8. BUMETANIDE. [Concomitant]
     Active Substance: BUMETANIDE
  9. DOXYCYCLINE. [Concomitant]
     Active Substance: DOXYCYCLINE
  10. PRILOSEC [Concomitant]
     Active Substance: OMEPRAZOLE MAGNESIUM
  11. CEFACLOR. [Concomitant]
     Active Substance: CEFACLOR
  12. TEMAZEPAM. [Concomitant]
     Active Substance: TEMAZEPAM
  13. AZELASTINE [Concomitant]
     Active Substance: AZELASTINE
  14. MIDODRINE [Concomitant]
     Active Substance: MIDODRINE
  15. FISH OIL [Concomitant]
     Active Substance: FISH OIL
  16. VITAMIN D [Concomitant]
     Active Substance: CHOLECALCIFEROL
  17. TAGAMET [Concomitant]
     Active Substance: CIMETIDINE
  18. BUMETANIDE. [Concomitant]
     Active Substance: BUMETANIDE
  19. RANITIDINE. [Concomitant]
     Active Substance: RANITIDINE
  20. METADATE [Concomitant]
     Active Substance: METHYLPHENIDATE HYDROCHLORIDE
  21. HIZENTRA [Suspect]
     Active Substance: HUMAN IMMUNOGLOBULIN G
     Indication: SELECTIVE IGG SUBCLASS DEFICIENCY
     Dosage: 4 GM 20 ML VIAL
     Route: 058
     Dates: start: 20130828
  22. PULMICORT TURBUHALER [Concomitant]
     Active Substance: BUDESONIDE
  23. LEXAPRO [Concomitant]
     Active Substance: ESCITALOPRAM OXALATE
  24. PROAIR HFA [Concomitant]
     Active Substance: ALBUTEROL SULFATE
  25. SINGULAIR [Concomitant]
     Active Substance: MONTELUKAST SODIUM
  26. MAGNESIUM [Concomitant]
     Active Substance: MAGNESIUM
  27. ZETIA [Concomitant]
     Active Substance: EZETIMIBE
  28. OCUVITE [Concomitant]
     Active Substance: VITAMINS
  29. CALCIUM CITRATE - VITAMIN D [Concomitant]
  30. LIPITOR [Concomitant]
     Active Substance: ATORVASTATIN CALCIUM
  31. FLORASTOR [Concomitant]
     Active Substance: SACCHAROMYCES CEREVISIAE

REACTIONS (4)
  - Infusion site extravasation [Unknown]
  - Sinus operation [Unknown]
  - Osteomyelitis [Unknown]
  - Chronic sinusitis [Unknown]
